FAERS Safety Report 21255438 (Version 3)
Quarter: 2022Q4

REPORT INFORMATION
  Report Type: Spontaneous
  Country: US (occurrence: US)
  Receive Date: 20220825
  Receipt Date: 20221103
  Transmission Date: 20230112
  Serious: Yes (Hospitalization, Other)
  Sender: FDA-Public Use
  Company Number: US-PFIZER INC-PV202200043796

PATIENT
  Age: 67 Year
  Sex: Female

DRUGS (9)
  1. HYDROCORTISONE [Suspect]
     Active Substance: HYDROCORTISONE
     Dosage: GLUCOCORTICOID TAPER
  2. HYDROCORTISONE [Suspect]
     Active Substance: HYDROCORTISONE
     Dosage: 100 MG (ONE TIME DOSE)
  3. HYDROCORTISONE [Suspect]
     Active Substance: HYDROCORTISONE
     Dosage: 50 MG EVERY 6 H
  4. HYDROCORTISONE [Suspect]
     Active Substance: HYDROCORTISONE
     Dosage: 25 MG EVERY 6 H
  5. DEXAMETHASONE [Suspect]
     Active Substance: DEXAMETHASONE
     Indication: Postoperative respiratory distress
     Dosage: GLUCOCORTICOID TAPER
  6. DEXAMETHASONE [Suspect]
     Active Substance: DEXAMETHASONE
     Dosage: 10 MG, 2X/DAY
  7. DEXAMETHASONE [Suspect]
     Active Substance: DEXAMETHASONE
     Dosage: 8 MG, 2X/DAY
  8. DEXAMETHASONE [Suspect]
     Active Substance: DEXAMETHASONE
     Dosage: 6 MG, 1X/DAY
  9. PREDNISONE [Suspect]
     Active Substance: PREDNISONE
     Indication: Back pain
     Dosage: 50 MG, DAILY, FOR 5 DAYS OVER A 3-MONTH PERIOD

REACTIONS (5)
  - Acute kidney injury [Recovered/Resolved]
  - Septic shock [Recovered/Resolved]
  - Herpes simplex oesophagitis [Recovered/Resolved]
  - Candida infection [Recovered/Resolved]
  - Herpes simplex [Recovered/Resolved]
